FAERS Safety Report 8896413 (Version 1)
Quarter: 2012Q4

REPORT INFORMATION
  Report Type: Spontaneous
  Country: US (occurrence: None)
  Receive Date: 20121031
  Receipt Date: 20121031
  Transmission Date: 20130627
  Serious: Yes (Death, Other)
  Sender: FDA-Public Use
  Company Number: 2012MA012485

PATIENT
  Age: 57 Year
  Sex: Female

DRUGS (10)
  1. LEVETIRACETAM [Suspect]
     Indication: CONVULSION PROPHYLAXIS
  2. DIPHENHYDRAMINE [Concomitant]
  3. ETHANOL [Concomitant]
  4. CITALOPRAM [Concomitant]
  5. LAMOTRIGINE [Concomitant]
  6. MEMANTINE [Concomitant]
  7. QUETIAPINE [Concomitant]
  8. TRAZODONE [Concomitant]
  9. VVERAPAMIL [Concomitant]
  10. CHLOROPHENYLPIPERAZINE [Concomitant]

REACTIONS (3)
  - Intentional overdose [None]
  - Completed suicide [None]
  - Toxicity to various agents [None]
